FAERS Safety Report 9233441 (Version 1)
Quarter: 2013Q2

REPORT INFORMATION
  Report Type: Spontaneous
  Country: US (occurrence: US)
  Receive Date: 20130416
  Receipt Date: 20130416
  Transmission Date: 20140414
  Serious: No
  Sender: FDA-Public Use
  Company Number: US-BANPHARM-20120021

PATIENT
  Age: 77 Year
  Sex: Female
  Weight: 68 kg

DRUGS (3)
  1. ALEVE LIQUID GELS 220 MG [Suspect]
     Route: 048
  2. ALEVE? CAPLETS - 50S [Suspect]
     Route: 048
     Dates: end: 20120726
  3. ZIAC [Concomitant]

REACTIONS (2)
  - Drug effect incomplete [Unknown]
  - Epistaxis [Recovered/Resolved]
